FAERS Safety Report 5927588-3 (Version None)
Quarter: 2008Q4

REPORT INFORMATION
  Report Type: 
  Country: None (occurrence: None)
  Receive Date: 20081020
  Receipt Date: 20081009
  Transmission Date: 20090506
  Serious: No
  Sender: FDA-Public Use
  Company Number: 08H-163-0315048-00

PATIENT
  Age: 42 Year
  Sex: Female

DRUGS (1)
  1. VANCOMYCIN HCL [Suspect]
     Indication: CELLULITIS
     Dosage: INTRAVENOUS
     Route: 042
     Dates: start: 20080501, end: 20080521

REACTIONS (2)
  - DYSPNOEA [None]
  - PRURITUS [None]
